FAERS Safety Report 8823804 (Version 2)
Quarter: 2012Q4

REPORT INFORMATION
  Report Type: 
  Country: US (occurrence: US)
  Receive Date: 20121003
  Receipt Date: 20121016
  Transmission Date: 20130627
  Serious: No
  Sender: FDA-Public Use
  Company Number: US-PFIZER INC-2012240280

PATIENT
  Sex: Male

DRUGS (1)
  1. VIAGRA [Suspect]
     Dosage: UNK
     Dates: start: 2003

REACTIONS (6)
  - Product taste abnormal [Unknown]
  - Headache [Unknown]
  - Abdominal discomfort [Unknown]
  - Wrong technique in drug usage process [Unknown]
  - Suspected counterfeit product [Unknown]
  - Drug ineffective [Unknown]
